FAERS Safety Report 17059061 (Version 1)
Quarter: 2019Q4

REPORT INFORMATION
  Report Type: Report from Study
  Country: None (occurrence: CZ)
  Receive Date: 20191121
  Receipt Date: 20191121
  Transmission Date: 20200122
  Serious: Yes (Hospitalization)
  Sender: FDA-Public Use
  Company Number: CZ-ABBVIE-19K-217-3003826-00

PATIENT
  Age: 41 Year
  Sex: Male

DRUGS (2)
  1. HUMIRA [Suspect]
     Active Substance: ADALIMUMAB
     Indication: ANKYLOSING SPONDYLITIS
     Route: 058
     Dates: start: 20150922, end: 20190820
  2. HUMIRA [Suspect]
     Active Substance: ADALIMUMAB
     Route: 058
     Dates: start: 20191028

REACTIONS (2)
  - Malignant melanoma [Recovering/Resolving]
  - Melanocytic naevus [Recovering/Resolving]

NARRATIVE: CASE EVENT DATE: 20190710
